FAERS Safety Report 5314895-0 (Version None)
Quarter: 2007Q2

REPORT INFORMATION
  Report Type: 
  Country: None (occurrence: None)
  Receive Date: 20070502
  Receipt Date: 20070423
  Transmission Date: 20071010
  Serious: Yes (Other)
  Sender: FDA-Public Use
  Company Number: FR-ROCHE-490026

PATIENT
  Age: 68 Year
  Sex: Male
  Weight: 62 kg

DRUGS (2)
  1. XELODA [Suspect]
     Route: 048
     Dates: start: 20060401, end: 20060601
  2. XELODA [Suspect]
     Route: 048
     Dates: start: 20061001

REACTIONS (1)
  - VISUAL ACUITY REDUCED [None]
